FAERS Safety Report 22124021 (Version 1)
Quarter: 2023Q1

REPORT INFORMATION
  Report Type: Spontaneous
  Country: US (occurrence: None)
  Receive Date: 20230321
  Receipt Date: 20230321
  Transmission Date: 20230417
  Serious: Yes (Other)
  Sender: FDA-Public Use
  Company Number: None

PATIENT
  Age: 50 Year
  Sex: Female
  Weight: 72 kg

DRUGS (1)
  1. LEVOTHYROXINE [Suspect]
     Active Substance: LEVOTHYROXINE
     Indication: Thyroidectomy
     Dosage: OTHER STRENGTH : 100MCG;?OTHER QUANTITY : 90 TABLET(S);?
     Route: 048
     Dates: start: 20220104, end: 20220202

REACTIONS (5)
  - Product substitution issue [None]
  - Headache [None]
  - Inflammation [None]
  - Tinnitus [None]
  - Head discomfort [None]

NARRATIVE: CASE EVENT DATE: 20220202
